FAERS Safety Report 6965886-5 (Version None)
Quarter: 2010Q3

REPORT INFORMATION
  Report Type: 
  Country: None (occurrence: None)
  Receive Date: 20100903
  Receipt Date: 20100830
  Transmission Date: 20110219
  Serious: Yes (Death)
  Sender: FDA-Public Use
  Company Number: DE-ABBOTT-10P-062-0666514-00

PATIENT
  Age: 71 Year
  Sex: Male
  Weight: 90 kg

DRUGS (12)
  1. ZEMPLAR [Suspect]
     Indication: PRODUCT USED FOR UNKNOWN INDICATION
     Dosage: 15 MG PER WEEK
     Route: 042
     Dates: start: 20100308
  2. ERYPO [Concomitant]
     Indication: PRODUCT USED FOR UNKNOWN INDICATION
     Dosage: 20000IE PER WEEK
     Route: 058
     Dates: start: 20100210
  3. FERRLECIT [Concomitant]
     Indication: PRODUCT USED FOR UNKNOWN INDICATION
     Dosage: 120 MG PER WEEK
     Route: 042
     Dates: start: 20100301
  4. VANCOMYCIN HCL [Concomitant]
     Indication: PRODUCT USED FOR UNKNOWN INDICATION
     Dosage: 1 G PER WEEK
     Route: 042
     Dates: start: 20100416
  5. OXAZEPAM [Concomitant]
     Indication: PRODUCT USED FOR UNKNOWN INDICATION
     Dosage: 7-10 MG PER WEEK BY FAMILY DOCTOR
     Route: 048
  6. TORASEMID [Concomitant]
     Indication: PRODUCT USED FOR UNKNOWN INDICATION
     Dosage: 15 MG DAILY BY FAMILY DOCTOR
     Route: 048
  7. SIMVASTATIN [Concomitant]
     Indication: PRODUCT USED FOR UNKNOWN INDICATION
     Dosage: 7- 20 MG PER WEEK BY FAMILY DOCTOR
     Route: 048
  8. DOMINAL FORTE [Concomitant]
     Indication: PRODUCT USED FOR UNKNOWN INDICATION
     Dosage: 80 MG DAILY BY FAMILY DOCTOR
     Route: 048
  9. MIRTAZAPIN [Concomitant]
     Indication: PRODUCT USED FOR UNKNOWN INDICATION
     Dosage: 15 MG DAILY BY FAMILY DOCTOR
     Route: 048
  10. AQUAPHOR [Concomitant]
     Indication: PRODUCT USED FOR UNKNOWN INDICATION
     Dosage: 8- 40MG PER WEEK BY FAMILY DOCTOR
     Route: 048
  11. ACETYLCYSTEINE [Concomitant]
     Indication: PRODUCT USED FOR UNKNOWN INDICATION
     Dosage: 7- 100MG PER WEEK BY FAMILY DOCTOR
     Route: 048
  12. HUMALOG MIX [Concomitant]
     Indication: PRODUCT USED FOR UNKNOWN INDICATION
     Dosage: 238IE PER WEEK  BY FAMILY DOCTOR
     Route: 058

REACTIONS (1)
  - DEATH [None]
